FAERS Safety Report 4851093-9 (Version None)
Quarter: 2005Q4

REPORT INFORMATION
  Report Type: 
  Country: None (occurrence: None)
  Receive Date: 20051130
  Receipt Date: 20050927
  Transmission Date: 20060501
  Serious: No
  Sender: FDA-Public Use
  Company Number: FABR-11252

PATIENT
  Age: 48 Year
  Sex: Male
  Weight: 70 kg

DRUGS (6)
  1. FABRAZYME [Suspect]
     Indication: FABRY'S DISEASE
     Dosage: 70 MG Q2WKS IV
     Route: 042
     Dates: start: 20050830
  2. ACETAMINOPHEN [Concomitant]
  3. COUMADIN [Concomitant]
  4. LANOXIN [Concomitant]
  5. CALAN [Concomitant]
  6. PREDNISONE [Concomitant]

REACTIONS (2)
  - PRURITUS [None]
  - RASH [None]
